FAERS Safety Report 6865631-8 (Version None)
Quarter: 2010Q3

REPORT INFORMATION
  Report Type: 
  Country: None (occurrence: None)
  Receive Date: 20100720
  Receipt Date: 20100708
  Transmission Date: 20110219
  Serious: Yes (Hospitalization, Other)
  Sender: FDA-Public Use
  Company Number: 2010-00552

PATIENT
  Sex: Female

DRUGS (2)
  1. SIMVASTATIN [Suspect]
     Indication: PRODUCT USED FOR UNKNOWN INDICATION
     Dosage: 40 MG (UNKNOWN, 1 IN 1 D), UNKNOWN
  2. DAKTARIN (MICONAZOLE NITRATE, MICONAZOLE) 2% GEL (2 PERCENT, UNKNOWN) [Suspect]
     Indication: ORAL CANDIDIASIS
     Dosage: ORAL
     Route: 048

REACTIONS (2)
  - DRUG INTERACTION [None]
  - OEDEMA MOUTH [None]
